FAERS Safety Report 4688060-4 (Version None)
Quarter: 2005Q2

REPORT INFORMATION
  Report Type: 
  Country: None (occurrence: None)
  Receive Date: 20050610
  Receipt Date: 20050524
  Transmission Date: 20051028
  Serious: Yes (Hospitalization)
  Sender: FDA-Public Use
  Company Number: CA-ROCHE-405827

PATIENT
  Age: 52 Year
  Sex: Male

DRUGS (6)
  1. PEGASYS [Suspect]
     Indication: HEPATITIS C
     Dosage: THIS COMBINATION PACK CONSISTS OF PEG-INTERFERON ALFA 2A PREFILLED SYRINGE, STRENGTH 180 MCG, AND R+
     Route: 050
     Dates: start: 20050222, end: 20050520
  2. CYCLOSPORINE [Concomitant]
  3. CALCIUM CARBONATE [Concomitant]
  4. CARDIZEM [Concomitant]
     Indication: BLOOD PRESSURE
     Route: 048
  5. COUMADIN [Concomitant]
     Indication: PORTAL VEIN THROMBOSIS
     Route: 048
  6. K-DUR 10 [Concomitant]

REACTIONS (10)
  - BACTERIAL SEPSIS [None]
  - CONFUSIONAL STATE [None]
  - DEPRESSED LEVEL OF CONSCIOUSNESS [None]
  - EPISTAXIS [None]
  - INFLUENZA [None]
  - MOUTH HAEMORRHAGE [None]
  - RESPIRATORY DISORDER [None]
  - STAPHYLOCOCCAL INFECTION [None]
  - STREPTOCOCCAL INFECTION [None]
  - URINARY TRACT INFECTION [None]
